FAERS Safety Report 6901597-X (Version None)
Quarter: 2010Q3

REPORT INFORMATION
  Report Type: 
  Country: None (occurrence: None)
  Receive Date: 20100803
  Receipt Date: 20080216
  Transmission Date: 20110219
  Serious: No
  Sender: FDA-Public Use
  Company Number: US-PFIZER INC-2008016599

PATIENT
  Age: 54 Year
  Sex: Female

DRUGS (7)
  1. LYRICA [Suspect]
     Indication: FIBROMYALGIA
     Dates: start: 20070801
  2. DEPAKOTE [Concomitant]
     Indication: BIPOLAR DISORDER
     Route: 048
  3. CYMBALTA [Concomitant]
     Indication: GENERALISED ANXIETY DISORDER
     Route: 048
  4. AMBIEN [Concomitant]
     Indication: INSOMNIA
     Route: 048
  5. CELEXA [Concomitant]
     Indication: DEPRESSION
     Route: 048
  6. SPIRIVA [Concomitant]
     Indication: ASTHMA
     Route: 055
  7. PRILOSEC [Concomitant]
     Indication: ABDOMINAL SYMPTOM
     Route: 048

REACTIONS (1)
  - ABNORMAL DREAMS [None]
